FAERS Safety Report 7055434-6 (Version None)
Quarter: 2010Q4

REPORT INFORMATION
  Report Type: 
  Country: None (occurrence: None)
  Receive Date: 20101021
  Receipt Date: 20101013
  Transmission Date: 20110411
  Serious: Yes (Hospitalization)
  Sender: FDA-Public Use
  Company Number: FR-ASTRAZENECA-2010SE48587

PATIENT
  Age: 750 Month
  Sex: Male

DRUGS (4)
  1. CRESTOR [Suspect]
     Indication: HYPERCHOLESTEROLAEMIA
     Route: 048
     Dates: start: 20090201
  2. FLECTOR [Suspect]
     Route: 003
     Dates: start: 20100601, end: 20100601
  3. ZOFENILDUO [Suspect]
     Dosage: 30+12.5 MG, 1 TABLET DAILY
     Route: 048
  4. MONO-TILDIEM LP [Suspect]
     Route: 048

REACTIONS (1)
  - BURNS SECOND DEGREE [None]
